FAERS Safety Report 25656338 (Version 4)
Quarter: 2025Q4

REPORT INFORMATION
  Report Type: Spontaneous
  Country: CO (occurrence: CO)
  Receive Date: 20250807
  Receipt Date: 20251002
  Transmission Date: 20260117
  Serious: No
  Sender: PFIZER
  Company Number: CO-PFIZER INC-PV202500095182

PATIENT
  Age: 6 Year
  Sex: Female

DRUGS (1)
  1. GENOTROPIN [Suspect]
     Active Substance: SOMATROPIN
     Dosage: 0.4 MG, DAILY

REACTIONS (3)
  - Drug dose omission by device [Unknown]
  - Device mechanical issue [Unknown]
  - Device information output issue [Unknown]
